FAERS Safety Report 6240042-7 (Version None)
Quarter: 2009Q2

REPORT INFORMATION
  Report Type: 
  Country: None (occurrence: None)
  Receive Date: 20090623
  Receipt Date: 20090617
  Transmission Date: 20091009
  Serious: Yes (Death, Life-Threatening, Hospitalization)
  Sender: FDA-Public Use
  Company Number: ES-ROCHE-577138

PATIENT
  Sex: Female
  Weight: 57.1 kg

DRUGS (8)
  1. CAPECITABINE [Suspect]
     Indication: GASTRIC CANCER
     Dosage: FREQUENCY: D1-14 Q3W. PERMANENTLY DISCONTINUED.
     Route: 048
     Dates: start: 20080709, end: 20080725
  2. PLACEBO [Suspect]
     Indication: GASTRIC CANCER
     Dosage: FREQUENCY: D1 Q3W, FORM: INFUSION.
     Route: 042
     Dates: start: 20080709, end: 20080725
  3. CISPLATIN [Suspect]
     Indication: GASTRIC CANCER
     Dosage: FREQUENCY: D1 Q3W, FORM: INFUSION.
     Route: 042
     Dates: start: 20080709, end: 20080725
  4. FENTANILO [Concomitant]
     Dates: start: 20080701
  5. SEVREDOL [Concomitant]
     Dates: start: 20080701
  6. LORMETAZEPAM [Concomitant]
     Dates: start: 20080701, end: 20080722
  7. BROMAZEPAM [Concomitant]
     Dates: start: 20080701, end: 20080722
  8. OMEPRAZOL [Concomitant]
     Dosage: START : UNK JULY 2008
     Dates: start: 20080701

REACTIONS (4)
  - ACUTE ABDOMEN [None]
  - FEBRILE NEUTROPENIA [None]
  - GASTRIC PERFORATION [None]
  - THROMBOCYTOPENIA [None]
